FAERS Safety Report 9343117 (Version 1)
Quarter: 2013Q2

REPORT INFORMATION
  Report Type: Spontaneous
  Country: DE (occurrence: DE)
  Receive Date: 20130611
  Receipt Date: 20130611
  Transmission Date: 20140414
  Serious: Yes (Congenital Anomaly, Other)
  Sender: FDA-Public Use
  Company Number: DE-MYLANLABS-2013S1011600

PATIENT
  Age: 0 Year
  Sex: Female
  Weight: 2.92 kg

DRUGS (2)
  1. BISOPROLOL [Suspect]
     Route: 064
  2. FERRO FOLSAN /00023601/ [Concomitant]
     Indication: PROPHYLAXIS OF NEURAL TUBE DEFECT
     Dosage: 3.4 [MG/D ] / 400 [MG/D ]
     Route: 064

REACTIONS (4)
  - Haemangioma congenital [Recovering/Resolving]
  - Exposure during pregnancy [Recovered/Resolved]
  - Bradycardia neonatal [Recovered/Resolved]
  - Small for dates baby [Recovered/Resolved]
